FAERS Safety Report 12463617 (Version 1)
Quarter: 2016Q2

REPORT INFORMATION
  Report Type: Spontaneous
  Country: US (occurrence: US)
  Receive Date: 20160614
  Receipt Date: 20160614
  Transmission Date: 20160815
  Serious: Yes (Other)
  Sender: FDA-Public Use
  Company Number: US-TEVA-665997USA

PATIENT
  Sex: Female

DRUGS (1)
  1. PROVIGIL [Suspect]
     Active Substance: MODAFINIL
     Dosage: 200 MILLIGRAM DAILY;
     Route: 065

REACTIONS (7)
  - Head injury [Unknown]
  - Back injury [Unknown]
  - Cataplexy [Unknown]
  - Fall [Unknown]
  - Neck injury [Unknown]
  - Joint injury [Unknown]
  - Narcolepsy [Unknown]
